FAERS Safety Report 5894276-1 (Version None)
Quarter: 2008Q3

REPORT INFORMATION
  Report Type: 
  Country: None (occurrence: None)
  Receive Date: 20080923
  Receipt Date: 20080424
  Transmission Date: 20090109
  Serious: No
  Sender: FDA-Public Use
  Company Number: US-ASTRAZENECA-2008UW06501

PATIENT
  Age: 14 Year
  Sex: Male
  Weight: 72.6 kg

DRUGS (8)
  1. SEROQUEL [Suspect]
     Indication: BIPOLAR DISORDER
     Route: 048
     Dates: start: 20080303
  2. SEROQUEL [Suspect]
     Route: 048
     Dates: start: 20080329
  3. SEROQUEL [Suspect]
     Route: 048
  4. DEPAKOTE [Concomitant]
  5. VISTARIL [Concomitant]
  6. MULTI-VITAMIN [Concomitant]
  7. CONCERTA [Concomitant]
     Dosage: 36 MG
  8. LEXAPRO [Concomitant]

REACTIONS (3)
  - CONTUSION [None]
  - ILL-DEFINED DISORDER [None]
  - OEDEMA PERIPHERAL [None]
